FAERS Safety Report 8825728 (Version 4)
Quarter: 2014Q1

REPORT INFORMATION
  Report Type: Spontaneous
  Country: US (occurrence: US)
  Receive Date: 20121004
  Receipt Date: 20140122
  Transmission Date: 20141002
  Serious: Yes (Hospitalization, Disabling, Other)
  Sender: FDA-Public Use
  Company Number: US-009507513-1205USA00969

PATIENT
  Sex: Female

DRUGS (3)
  1. FOSAMAX [Suspect]
     Indication: OSTEOPOROSIS
     Dosage: 70 MG, QW
     Route: 048
     Dates: end: 2010
  2. FOSAMAX [Suspect]
     Dosage: 10 MG, UNK
  3. ALENDRONATE SODIUM [Suspect]

REACTIONS (21)
  - Femur fracture [Unknown]
  - Fall [Unknown]
  - Intramedullary rod insertion [Unknown]
  - Medical device removal [Unknown]
  - Intramedullary rod insertion [Unknown]
  - Knee arthroplasty [Unknown]
  - Hypokalaemia [Unknown]
  - Urinary tract infection [Unknown]
  - Atelectasis [Unknown]
  - Cholecystitis acute [Unknown]
  - Cholelithiasis [Unknown]
  - Gastroenteritis Escherichia coli [Unknown]
  - Fracture delayed union [Unknown]
  - Fracture nonunion [Unknown]
  - Anaemia [Unknown]
  - Tenosynovitis stenosans [Unknown]
  - Hypertension [Unknown]
  - Blood cholesterol increased [Unknown]
  - Vitamin D deficiency [Unknown]
  - Calcium deficiency [Unknown]
  - Inappropriate schedule of drug administration [Unknown]
